FAERS Safety Report 21834047 (Version 1)
Quarter: 2023Q1

REPORT INFORMATION
  Report Type: Spontaneous
  Country: US (occurrence: None)
  Receive Date: 20230108
  Receipt Date: 20230108
  Transmission Date: 20230417
  Serious: No
  Sender: FDA-Public Use
  Company Number: US-ROCHE-3013074

PATIENT
  Sex: Male

DRUGS (2)
  1. HEMLIBRA [Suspect]
     Active Substance: EMICIZUMAB-KXWH
     Indication: Product used for unknown indication
     Route: 058
     Dates: start: 20201019
  2. HEMLIBRA [Suspect]
     Active Substance: EMICIZUMAB-KXWH
     Dosage: EVERY 14 DAYS
     Route: 058
     Dates: start: 20201019

REACTIONS (4)
  - Illness [Unknown]
  - Dyspnoea [Unknown]
  - Rhinorrhoea [Unknown]
  - Unevaluable event [Unknown]
